FAERS Safety Report 4825646-8 (Version None)
Quarter: 2005Q4

REPORT INFORMATION
  Report Type: 
  Country: None (occurrence: None)
  Receive Date: 20051111
  Receipt Date: 20051031
  Transmission Date: 20060501
  Serious: Yes (Other)
  Sender: FDA-Public Use
  Company Number: CH-AMGEN-UK153056

PATIENT
  Sex: Female
  Weight: 67 kg

DRUGS (4)
  1. MIMPARA [Suspect]
     Indication: HYPERPARATHYROIDISM SECONDARY
     Route: 048
     Dates: start: 20041129
  2. TACROLIMUS [Suspect]
     Route: 048
     Dates: start: 20040226
  3. CELLCEPT [Concomitant]
     Route: 048
     Dates: start: 20031010
  4. CALCITRIOL [Concomitant]
     Route: 048
     Dates: start: 20050608, end: 20051017

REACTIONS (3)
  - DRUG INTERACTION [None]
  - DRUG TOXICITY [None]
  - NEPHROPATHY TOXIC [None]
